FAERS Safety Report 23501855 (Version 1)
Quarter: 2024Q1

REPORT INFORMATION
  Report Type: Report from Study
  Country: CO (occurrence: CO)
  Receive Date: 20240208
  Receipt Date: 20240208
  Transmission Date: 20240409
  Serious: Yes (Death)
  Sender: FDA-Public Use
  Company Number: CO-ABBVIE-5628747

PATIENT
  Age: 29 Year
  Sex: Male

DRUGS (1)
  1. VENCLEXTA [Suspect]
     Active Substance: VENETOCLAX
     Indication: Acute myeloid leukaemia
     Dosage: FORM STRENGTH 100 MILLIGRAM
     Route: 048
     Dates: start: 20240103, end: 20240125

REACTIONS (1)
  - Death [Fatal]

NARRATIVE: CASE EVENT DATE: 20240130
